FAERS Safety Report 5276655-9 (Version None)
Quarter: 2007Q1

REPORT INFORMATION
  Report Type: 
  Country: None (occurrence: None)
  Receive Date: 20061213
  Receipt Date: 20040630
  Transmission Date: 20070707
  Serious: No
  Sender: FDA-Public Use
  Company Number: 2004UW12101

PATIENT
  Age: 70 Year
  Sex: Female
  Weight: 81.6475 kg

DRUGS (3)
  1. SEROQUEL [Suspect]
     Indication: BIPOLAR DISORDER
     Dosage: 150 MG DAILY PO
     Route: 048
     Dates: start: 20010621, end: 20040601
  2. SERZONE [Concomitant]
  3. KLONOPIN [Concomitant]

REACTIONS (1)
  - TARDIVE DYSKINESIA [None]
